FAERS Safety Report 4892622-9 (Version None)
Quarter: 2006Q1

REPORT INFORMATION
  Report Type: 
  Country: None (occurrence: None)
  Receive Date: 20060126
  Receipt Date: 20050825
  Transmission Date: 20060701
  Serious: Yes (Hospitalization)
  Sender: FDA-Public Use
  Company Number: FR-ROCHE-415292

PATIENT
  Age: 83 Year
  Sex: Female

DRUGS (8)
  1. LOXEN LP [Suspect]
     Indication: HYPERTENSIVE CARDIOMYOPATHY
     Route: 048
     Dates: end: 20050203
  2. LOXEN LP [Suspect]
     Route: 048
     Dates: start: 20050615
  3. CELECTOL [Interacting]
     Indication: HYPERTENSIVE CARDIOMYOPATHY
     Route: 048
  4. FORTZAAR [Interacting]
     Indication: HYPERTENSIVE CARDIOMYOPATHY
     Route: 048
     Dates: start: 20050101, end: 20050201
  5. DIAFUSOR [Interacting]
     Indication: DRUG USE FOR UNKNOWN INDICATION
     Route: 062
  6. AMIODARONE HCL [Concomitant]
     Route: 048
  7. FLUINDIONE [Concomitant]
     Route: 048
  8. SIMVASTATIN [Concomitant]
     Route: 048

REACTIONS (7)
  - DRUG INTERACTION [None]
  - FALL [None]
  - HAEMATOMA [None]
  - HEMIPARESIS [None]
  - MALAISE [None]
  - ORTHOSTATIC HYPOTENSION [None]
  - SPINAL COMPRESSION FRACTURE [None]
